FAERS Safety Report 4714713-5 (Version None)
Quarter: 2005Q3

REPORT INFORMATION
  Report Type: 
  Country: None (occurrence: None)
  Receive Date: 20050713
  Receipt Date: 20050701
  Transmission Date: 20060218
  Serious: Yes (Other)
  Sender: FDA-Public Use
  Company Number: 2005096479

PATIENT
  Age: 28 Year
  Sex: Male

DRUGS (2)
  1. RELPAX [Suspect]
     Indication: HEADACHE
     Dosage: (40 MG)
  2. ACETAMINOPHEN [Suspect]
     Indication: ILL-DEFINED DISORDER

REACTIONS (4)
  - DIZZINESS [None]
  - DYSKINESIA [None]
  - LOSS OF CONSCIOUSNESS [None]
  - MUSCLE CONTRACTIONS INVOLUNTARY [None]
